FAERS Safety Report 11168547 (Version 2)
Quarter: 2016Q3

REPORT INFORMATION
  Report Type: Spontaneous
  Country: NL (occurrence: NL)
  Receive Date: 20150605
  Receipt Date: 20160907
  Transmission Date: 20161109
  Serious: Yes (Hospitalization)
  Sender: FDA-Public Use
  Company Number: NL-IMPAX LABORATORIES, INC-2015-IPXL-00604

PATIENT
  Age: 5 Month
  Sex: Male
  Weight: 5 kg

DRUGS (5)
  1. CAPTOPRIL. [Concomitant]
     Active Substance: CAPTOPRIL
     Indication: CARDIAC FAILURE
     Dosage: (2 MG/KG) PER DAY
     Route: 065
  2. BUMETANIDE. [Concomitant]
     Active Substance: BUMETANIDE
     Indication: CARDIAC FAILURE
     Dosage: (0.3 MG/KG) PER DAY
     Route: 065
  3. SPIRONOLACTONE. [Concomitant]
     Active Substance: SPIRONOLACTONE
     Indication: CARDIAC FAILURE
     Dosage: (1.2 MG/KG) PER DAY
     Route: 065
  4. DIGOXIN. [Suspect]
     Active Substance: DIGOXIN
     Indication: CARDIAC FAILURE
     Dosage: (6 ?G/KG) PER DAY
     Route: 065
  5. CARVEDILOL. [Concomitant]
     Active Substance: CARVEDILOL
     Indication: CARDIAC FAILURE
     Dosage: (0.2 MG/KG) PER DAY
     Route: 065

REACTIONS (12)
  - Weight decreased [Recovered/Resolved]
  - Hyperkalaemia [Recovered/Resolved]
  - Accidental overdose [Recovered/Resolved]
  - Toxicity to various agents [Recovered/Resolved]
  - Renal impairment [Recovered/Resolved]
  - Hyponatraemia [Recovered/Resolved]
  - Heart rate increased [Recovered/Resolved]
  - Electrocardiogram PR prolongation [Recovered/Resolved]
  - Feeding disorder [Unknown]
  - Vomiting [Recovered/Resolved]
  - Electrocardiogram P wave abnormal [Recovered/Resolved]
  - Electrocardiogram ST segment depression [Recovered/Resolved]
